FAERS Safety Report 7930802-6 (Version None)
Quarter: 2011Q4

REPORT INFORMATION
  Report Type: 
  Country: None (occurrence: None)
  Receive Date: 20111121
  Receipt Date: 20111111
  Transmission Date: 20120403
  Serious: Yes (Hospitalization)
  Sender: FDA-Public Use
  Company Number: NL-GLAXOSMITHKLINE-B0763406A

PATIENT
  Sex: Female
  Weight: 73 kg

DRUGS (1)
  1. MALARONE [Suspect]
     Indication: PROPHYLAXIS
     Route: 048
     Dates: start: 20110101, end: 20110101

REACTIONS (2)
  - ABDOMINAL DISCOMFORT [None]
  - MALAISE [None]
